FAERS Safety Report 18549768 (Version 2)
Quarter: 2020Q4

REPORT INFORMATION
  Report Type: Spontaneous
  Country: US (occurrence: US)
  Receive Date: 20201126
  Receipt Date: 20201223
  Transmission Date: 20210114
  Serious: No
  Sender: FDA-Public Use
  Company Number: US-TEVA-2020-US-1851864

PATIENT
  Sex: Female

DRUGS (1)
  1. BUPRENORPHINE W/NALOXONE [Suspect]
     Active Substance: BUPRENORPHINE HYDROCHLORIDE\NALOXONE HYDROCHLORIDE
     Indication: DRUG DEPENDENCE
     Dosage: FORM STRENGTH: BUPRENORPHINE: 8 MG AND NALOXONE: 2 MG
     Route: 065

REACTIONS (2)
  - Headache [Unknown]
  - Product substitution issue [Unknown]
